FAERS Safety Report 6921086-6 (Version None)
Quarter: 2010Q3

REPORT INFORMATION
  Report Type: 
  Country: None (occurrence: None)
  Receive Date: 20100812
  Receipt Date: 20100805
  Transmission Date: 20110219
  Serious: Yes (Other)
  Sender: FDA-Public Use
  Company Number: TR-ROCHE-719593

PATIENT
  Age: 58 Year
  Sex: Female
  Weight: 51 kg

DRUGS (5)
  1. MIRCERA [Suspect]
     Dosage: ROUTE: S.C.
     Route: 058
     Dates: start: 20100113, end: 20100716
  2. SEVELAMER [Concomitant]
     Dosage: DRUG NAME REPORTED AS SEVALEMER 800 MG.
     Route: 048
  3. AMINO ACID INJ [Concomitant]
     Dosage: DRUG NAME REPORTED AS ESSENTIAL AMINO ACIDS.
     Route: 048
  4. METOPROLOL SUCCINATE [Concomitant]
     Dosage: DRUG NAME REPORTED AS BELOC ZOC 50 MG.
     Route: 048
  5. VASTAREL [Concomitant]
     Dosage: DRUG NAME REPORTED AS VASTAREL 20 MG.
     Route: 048

REACTIONS (3)
  - HAEMOGLOBIN DECREASED [None]
  - SERUM FERRITIN INCREASED [None]
  - SUDDEN VISUAL LOSS [None]
